FAERS Safety Report 17324540 (Version 1)
Quarter: 2020Q1

REPORT INFORMATION
  Report Type: Spontaneous
  Country: US (occurrence: US)
  Receive Date: 20200124
  Receipt Date: 20200124
  Transmission Date: 20200409
  Serious: Yes (Life-Threatening, Hospitalization)
  Sender: FDA-Public Use
  Company Number: None

PATIENT
  Age: 24 Year
  Sex: Female
  Weight: 52.27 kg

DRUGS (4)
  1. PLAN B [Concomitant]
     Active Substance: LEVONORGESTREL
     Dates: start: 20200114, end: 20200114
  2. BACTRIM [Suspect]
     Active Substance: SULFAMETHOXAZOLE\TRIMETHOPRIM
     Indication: URINARY TRACT INFECTION
     Route: 048
     Dates: start: 20200112, end: 20200120
  3. CEFTRIAXONE. [Concomitant]
     Active Substance: CEFTRIAXONE
     Dates: start: 20200114, end: 20200114
  4. TAMIFLU [Concomitant]
     Active Substance: OSELTAMIVIR PHOSPHATE
     Dates: start: 20200117, end: 20200121

REACTIONS (7)
  - Flank pain [None]
  - Rash [None]
  - Nausea [None]
  - Post coital contraception [None]
  - Pyrexia [None]
  - Respiratory distress [None]
  - Cough [None]

NARRATIVE: CASE EVENT DATE: 20200115
